FAERS Safety Report 20441024 (Version 2)
Quarter: 2022Q1

REPORT INFORMATION
  Report Type: Spontaneous
  Country: US (occurrence: US)
  Receive Date: 20220208
  Receipt Date: 20220311
  Transmission Date: 20220423
  Serious: Yes (Other)
  Sender: FDA-Public Use
  Company Number: US-RISINGPHARMA-US-2022RISSPO00091

PATIENT
  Sex: Female

DRUGS (1)
  1. PROPAFENONE HYDROCHLORIDE [Suspect]
     Active Substance: PROPAFENONE HYDROCHLORIDE
     Indication: Atrial fibrillation
     Route: 065

REACTIONS (3)
  - Atrial fibrillation [Unknown]
  - Drug ineffective [Unknown]
  - Product substitution issue [Unknown]
